FAERS Safety Report 6377161-0 (Version None)
Quarter: 2009Q3

REPORT INFORMATION
  Report Type: 
  Country: None (occurrence: None)
  Receive Date: 20090925
  Receipt Date: 20090914
  Transmission Date: 20100115
  Serious: Yes (Other)
  Sender: FDA-Public Use
  Company Number: JP-ELI_LILLY_AND_COMPANY-JP200909004172

PATIENT
  Age: 57 Year
  Sex: Male

DRUGS (3)
  1. PEMETREXED [Suspect]
     Indication: NON-SMALL CELL LUNG CANCER RECURRENT
     Dosage: 500 MG, OTHER
     Route: 042
     Dates: start: 20090908, end: 20090908
  2. PANVITAN [Concomitant]
     Route: 048
  3. HYDROXOCOBALAMIN ACETATE [Concomitant]
     Route: 030

REACTIONS (1)
  - CEREBRAL INFARCTION [None]
